FAERS Safety Report 10048090 (Version 1)
Quarter: 2014Q1

REPORT INFORMATION
  Report Type: Spontaneous
  Country: US (occurrence: None)
  Receive Date: 20140327
  Receipt Date: 20140327
  Transmission Date: 20141002
  Serious: Yes (Other)
  Sender: FDA-Public Use
  Company Number: 2014-US-003026

PATIENT
  Age: 50 Year
  Sex: Female
  Weight: 49 kg

DRUGS (3)
  1. XYREM (SODIUM OXYBATE) ORAL SOLUTION, 500 MG/ML [Suspect]
     Indication: NARCOLEPSY
     Route: 048
     Dates: start: 201205
  2. XYREM (SODIUM OXYBATE) ORAL SOLUTION, 500 MG/ML [Suspect]
     Indication: CATAPLEXY
     Route: 048
     Dates: start: 201205
  3. AMOXICILLIN (AMOXICILLIN TRIHYDRATE) [Suspect]
     Indication: SINUSITIS
     Route: 048
     Dates: start: 201401

REACTIONS (9)
  - Immunodeficiency common variable [None]
  - Weight decreased [None]
  - Rash pruritic [None]
  - Nausea [None]
  - Sinusitis [None]
  - Treatment failure [None]
  - Diarrhoea [None]
  - Vomiting [None]
  - Colitis [None]
